FAERS Safety Report 21211961 (Version 1)
Quarter: 2022Q3

REPORT INFORMATION
  Report Type: Spontaneous
  Country: AT (occurrence: AT)
  Receive Date: 20220815
  Receipt Date: 20220815
  Transmission Date: 20221027
  Serious: Yes (Hospitalization)
  Sender: FDA-Public Use
  Company Number: AT-PFIZER INC-PV202200038962

PATIENT

DRUGS (1)
  1. CRIZOTINIB [Suspect]
     Active Substance: CRIZOTINIB
     Dosage: UNK

REACTIONS (1)
  - Epilepsy [Unknown]
